FAERS Safety Report 9685185 (Version 1)
Quarter: 2013Q4

REPORT INFORMATION
  Report Type: Spontaneous
  Country: US (occurrence: None)
  Receive Date: 20131112
  Receipt Date: 20131112
  Transmission Date: 20140711
  Serious: No
  Sender: FDA-Public Use
  Company Number: None

PATIENT
  Age: 66 Year
  Sex: Female
  Weight: 68.04 kg

DRUGS (1)
  1. NIFEDIPINE [Suspect]
     Indication: HYPERTENSION
     Dosage: 1 PILL AT BEDTIME ONCE DAILY TAKEN BY MOUTH
     Dates: start: 20130101, end: 20131118

REACTIONS (8)
  - Local swelling [None]
  - Paraesthesia [None]
  - Formication [None]
  - Pain in extremity [None]
  - Pain in extremity [None]
  - Headache [None]
  - Local swelling [None]
  - Joint swelling [None]
